FAERS Safety Report 14965312 (Version 1)
Quarter: 2018Q2

REPORT INFORMATION
  Report Type: Other
  Country: US (occurrence: US)
  Receive Date: 20180601
  Receipt Date: 20180601
  Transmission Date: 20180711
  Serious: Yes (Other)
  Sender: FDA-Public Use
  Company Number: US-INTERCEPT-PMOCA2018000847

PATIENT

DRUGS (1)
  1. OCALIVA [Suspect]
     Active Substance: OBETICHOLIC ACID
     Indication: PRIMARY BILIARY CHOLANGITIS
     Dosage: 10 MG, QD
     Route: 048
     Dates: start: 20170123

REACTIONS (2)
  - Hepatic failure [Recovering/Resolving]
  - Swelling [Recovering/Resolving]
